FAERS Safety Report 4968323-5 (Version None)
Quarter: 2006Q2

REPORT INFORMATION
  Report Type: 
  Country: None (occurrence: None)
  Receive Date: 20060405
  Receipt Date: 20060327
  Transmission Date: 20061013
  Serious: Yes (Other)
  Sender: FDA-Public Use
  Company Number: 2006-03-1748

PATIENT
  Age: 55 Year
  Sex: Male

DRUGS (5)
  1. TEMODAL [Suspect]
     Indication: GLIOBLASTOMA MULTIFORME
     Dosage: 150MG QD ORAL
     Route: 048
     Dates: start: 20060301, end: 20060317
  2. DEXAMETHASONE TAB [Concomitant]
  3. CITALOPRAM [Concomitant]
  4. LANSOPRAZOLE [Concomitant]
  5. CO-TRIMOXAZOLE [Concomitant]

REACTIONS (2)
  - GASTROINTESTINAL HYPOMOTILITY [None]
  - ORAL INTAKE REDUCED [None]
